FAERS Safety Report 9288323 (Version 1)
Quarter: 2013Q2

REPORT INFORMATION
  Report Type: Spontaneous
  Country: CN (occurrence: CN)
  Receive Date: 20130514
  Receipt Date: 20130514
  Transmission Date: 20140414
  Serious: Yes (Hospitalization, Other)
  Sender: FDA-Public Use
  Company Number: CN-PFIZER INC-2013142922

PATIENT
  Age: 80 Year
  Sex: Male

DRUGS (1)
  1. CORDARONE [Suspect]
     Indication: ARRHYTHMIA
     Dosage: 200 MG, DAILY
     Route: 048
     Dates: start: 20110612, end: 20120307

REACTIONS (3)
  - Hypothyroidism [Recovering/Resolving]
  - Cardiac disorder [Unknown]
  - Chest pain [Unknown]
